FAERS Safety Report 24453147 (Version 2)
Quarter: 2024Q4

REPORT INFORMATION
  Report Type: Report from Study
  Country: US (occurrence: US)
  Receive Date: 20241017
  Receipt Date: 20241018
  Transmission Date: 20250115
  Serious: No
  Sender: ROCHE
  Company Number: US-ROCHE-3107754

PATIENT
  Age: 61 Year
  Sex: Male

DRUGS (10)
  1. RITUXAN [Suspect]
     Active Substance: RITUXIMAB
     Indication: Oesophageal carcinoma
     Route: 065
     Dates: start: 202204, end: 20230619
  2. METOCLOPRAMIDE [Concomitant]
     Active Substance: METOCLOPRAMIDE
  3. VALSARTAN [Concomitant]
     Active Substance: VALSARTAN
  4. VENTOLIN [Concomitant]
     Active Substance: ALBUTEROL SULFATE
  5. ASPIRIN [Concomitant]
     Active Substance: ASPIRIN
  6. ATENOLOL [Concomitant]
     Active Substance: ATENOLOL
  7. GEMFIBROZIL [Concomitant]
     Active Substance: GEMFIBROZIL
  8. ISOSORBIDE MONONITRATE [Concomitant]
     Active Substance: ISOSORBIDE MONONITRATE
  9. LEVOTHYROXINE SODIUM [Concomitant]
     Active Substance: LEVOTHYROXINE SODIUM
  10. NOREL AD [Concomitant]
     Active Substance: ACETAMINOPHEN\CHLORPHENIRAMINE MALEATE\PHENYLEPHRINE HYDROCHLORIDE
     Indication: Glomerulonephritis membranous

REACTIONS (2)
  - Off label use [Unknown]
  - No adverse event [Unknown]

NARRATIVE: CASE EVENT DATE: 20220401
